FAERS Safety Report 13943331 (Version 2)
Quarter: 2017Q3

REPORT INFORMATION
  Report Type: Spontaneous
  Country: JP (occurrence: JP)
  Receive Date: 20170907
  Receipt Date: 20170918
  Transmission Date: 20171128
  Serious: Yes (Hospitalization)
  Sender: FDA-Public Use
  Company Number: JP-JNJFOC-20170905195

PATIENT
  Age: 7 Decade
  Sex: Female
  Weight: 48 kg

DRUGS (1)
  1. STELARA [Suspect]
     Active Substance: USTEKINUMAB
     Indication: CROHN^S DISEASE
     Route: 042
     Dates: start: 20170601

REACTIONS (1)
  - Candida sepsis [Unknown]

NARRATIVE: CASE EVENT DATE: 2017
